FAERS Safety Report 7504445-2 (Version None)
Quarter: 2011Q2

REPORT INFORMATION
  Report Type: 
  Country: None (occurrence: None)
  Receive Date: 20110525
  Receipt Date: 20110516
  Transmission Date: 20111010
  Serious: Yes (Death)
  Sender: FDA-Public Use
  Company Number: NL-BAXTER-2011BH012159

PATIENT
  Age: 33 Year
  Sex: Male

DRUGS (1)
  1. DIANEAL [Suspect]
     Indication: HYPERTENSION
     Route: 033
     Dates: end: 20110414

REACTIONS (3)
  - SEPSIS [None]
  - DEVICE RELATED INFECTION [None]
  - PERITONITIS BACTERIAL [None]
